FAERS Safety Report 11897923 (Version 1)
Quarter: 2016Q1

REPORT INFORMATION
  Report Type: Spontaneous
  Country: US (occurrence: None)
  Receive Date: 20160107
  Receipt Date: 20160107
  Transmission Date: 20160526
  Serious: Yes (Death, Hospitalization)
  Sender: FDA-Public Use
  Company Number: None

PATIENT
  Age: 53 Year
  Sex: Male
  Weight: 58.3 kg

DRUGS (1)
  1. ENOXAPARIN (GENERIC) [Suspect]
     Active Substance: ENOXAPARIN
     Indication: DEEP VEIN THROMBOSIS
     Route: 058
     Dates: start: 20160102, end: 20160105

REACTIONS (8)
  - Anaemia [None]
  - Haemorrhage [None]
  - Hypovolaemic shock [None]
  - Cardiac arrest [None]
  - Nausea [None]
  - Vomiting [None]
  - Abdominal pain [None]
  - Diarrhoea [None]

NARRATIVE: CASE EVENT DATE: 20160105
